FAERS Safety Report 6999704-6 (Version None)
Quarter: 2010Q3

REPORT INFORMATION
  Report Type: 
  Country: None (occurrence: None)
  Receive Date: 20100920
  Receipt Date: 20091117
  Transmission Date: 20110219
  Serious: Yes (Other)
  Sender: FDA-Public Use
  Company Number: US-ASTRAZENECA-2008UW27387

PATIENT
  Age: 57 Year
  Sex: Female
  Weight: 83.9 kg

DRUGS (5)
  1. SEROQUEL [Suspect]
     Indication: EMOTIONAL DISORDER
     Dosage: 50 - 200 MG
     Route: 048
     Dates: start: 20071017, end: 20080125
  2. SEROQUEL [Suspect]
     Indication: MAJOR DEPRESSION
     Dosage: 50 - 200 MG
     Route: 048
     Dates: start: 20071017, end: 20080125
  3. SEROQUEL [Suspect]
     Indication: BIPOLAR DISORDER
     Dosage: 50 - 200 MG
     Route: 048
     Dates: start: 20071017, end: 20080125
  4. RISPERDAL [Concomitant]
  5. UNSPECIFIED PSYCHIATRIC MEDICATION [Concomitant]

REACTIONS (2)
  - DIABETES MELLITUS [None]
  - PANCREATITIS [None]
